FAERS Safety Report 15949459 (Version 1)
Quarter: 2019Q1

REPORT INFORMATION
  Report Type: Spontaneous
  Country: ZA (occurrence: ZA)
  Receive Date: 20190211
  Receipt Date: 20190211
  Transmission Date: 20190417
  Serious: Yes (Other)
  Sender: FDA-Public Use
  Company Number: ZA-JNJFOC-20190204502

PATIENT
  Age: 46 Year
  Sex: Male

DRUGS (8)
  1. TERIZIDONE [Suspect]
     Active Substance: TERIZIDONE
     Indication: TUBERCULOSIS
     Dosage: AT NIGHT
     Route: 048
     Dates: start: 20181207, end: 20190125
  2. SIRTURO [Suspect]
     Active Substance: BEDAQUILINE FUMARATE
     Indication: TUBERCULOSIS
     Route: 048
     Dates: start: 20181102
  3. CLOFAZIMINE [Suspect]
     Active Substance: CLOFAZIMINE
     Indication: TUBERCULOSIS
     Route: 048
     Dates: start: 20181102
  4. LINEZOLID. [Suspect]
     Active Substance: LINEZOLID
     Indication: TUBERCULOSIS
     Route: 048
     Dates: start: 20181102
  5. DELAMANID [Suspect]
     Active Substance: DELAMANID
     Indication: TUBERCULOSIS
     Route: 048
     Dates: start: 20181214
  6. AMINOSALICYLIC ACID [Suspect]
     Active Substance: AMINOSALICYLIC ACID
     Indication: TUBERCULOSIS
     Route: 048
     Dates: start: 20181209
  7. PYRIDOXINE [Concomitant]
     Active Substance: PYRIDOXINE
     Route: 065
  8. ETHIONAMIDE [Suspect]
     Active Substance: ETHIONAMIDE
     Indication: TUBERCULOSIS
     Route: 048
     Dates: start: 20181207

REACTIONS (1)
  - Psychotic disorder [Recovering/Resolving]

NARRATIVE: CASE EVENT DATE: 20190124
